FAERS Safety Report 5472463-4 (Version None)
Quarter: 2007Q3

REPORT INFORMATION
  Report Type: 
  Country: None (occurrence: None)
  Receive Date: 20070820
  Receipt Date: 20070503
  Transmission Date: 20080115
  Serious: No
  Sender: FDA-Public Use
  Company Number: WAES 0705USA00986

PATIENT
  Sex: Female

DRUGS (2)
  1. JANUVIA [Suspect]
     Indication: TYPE 2 DIABETES MELLITUS
     Dosage: PO
     Route: 048
     Dates: start: 20070401, end: 20070101
  2. THERAPY UNSPECIFIED [Concomitant]

REACTIONS (2)
  - HYPOGLYCAEMIA [None]
  - SWELLING FACE [None]
